FAERS Safety Report 16114312 (Version 2)
Quarter: 2021Q2

REPORT INFORMATION
  Report Type: Spontaneous
  Country: US (occurrence: US)
  Receive Date: 20190325
  Receipt Date: 20210413
  Transmission Date: 20210716
  Serious: No
  Sender: FDA-Public Use
  Company Number: US-ALLERGAN-1905322US

PATIENT
  Age: 27 Year
  Sex: Male
  Weight: 81.63 kg

DRUGS (3)
  1. JUST BLINK CONTACT SOLUTION [Concomitant]
     Indication: EYE LUBRICATION THERAPY
     Dosage: UNK
     Route: 047
  2. LATISSE [Suspect]
     Active Substance: BIMATOPROST
     Dosage: 2 GTT, QHS
     Route: 061
  3. LATISSE [Suspect]
     Active Substance: BIMATOPROST
     Indication: GROWTH OF EYELASHES
     Dosage: 2 GTT, QHS
     Route: 061
     Dates: start: 20190204

REACTIONS (6)
  - Eye discharge [Not Recovered/Not Resolved]
  - Ocular hyperaemia [Not Recovered/Not Resolved]
  - Wrong technique in product usage process [Unknown]
  - Eye inflammation [Not Recovered/Not Resolved]
  - Insomnia [Recovered/Resolved]
  - Dry eye [Not Recovered/Not Resolved]

NARRATIVE: CASE EVENT DATE: 20190204
